FAERS Safety Report 8066668-6 (Version None)
Quarter: 2012Q1

REPORT INFORMATION
  Report Type: 
  Country: None (occurrence: None)
  Receive Date: 20120124
  Receipt Date: 20120120
  Transmission Date: 20120608
  Serious: Yes (Hospitalization)
  Sender: FDA-Public Use
  Company Number: PHEH2012US001838

PATIENT
  Sex: Male

DRUGS (7)
  1. FENOFIBRATE [Suspect]
     Dosage: UNK
  2. PLAVIX [Concomitant]
     Dosage: UNK
  3. SIMVASTATIN [Concomitant]
     Dosage: UNK
  4. HUMALOG [Suspect]
     Dosage: UNK
  5. LANTUS [Suspect]
     Dosage: UNK
  6. RABEPRAZOLE SODIUM [Concomitant]
     Dosage: UNK
  7. TEKTURNA [Suspect]
     Dosage: 300 MG, QD

REACTIONS (4)
  - RENAL DISORDER [None]
  - PROSTATIC DISORDER [None]
  - PULMONARY OEDEMA [None]
  - PNEUMONIA [None]
